FAERS Safety Report 17658719 (Version 2)
Quarter: 2020Q2

REPORT INFORMATION
  Report Type: Spontaneous
  Country: US (occurrence: US)
  Receive Date: 20200413
  Receipt Date: 20200609
  Transmission Date: 20200713
  Serious: No
  Sender: FDA-Public Use
  Company Number: US-ASTRAZENECA-2020SE48204

PATIENT
  Sex: Female
  Weight: 98 kg

DRUGS (1)
  1. BYDUREON BCISE [Suspect]
     Active Substance: EXENATIDE
     Indication: TYPE 2 DIABETES MELLITUS
     Route: 058

REACTIONS (4)
  - Injection site pain [Recovered/Resolved]
  - Drug dose omission by device [Not Recovered/Not Resolved]
  - Device leakage [Unknown]
  - Injection site haemorrhage [Recovered/Resolved]
